FAERS Safety Report 6832312-6 (Version None)
Quarter: 2010Q3

REPORT INFORMATION
  Report Type: 
  Country: None (occurrence: None)
  Receive Date: 20100712
  Receipt Date: 20100630
  Transmission Date: 20110219
  Serious: Yes (Other)
  Sender: FDA-Public Use
  Company Number: JP-PFIZER INC-2010071308

PATIENT
  Age: 59 Year
  Sex: Female
  Weight: 36.4 kg

DRUGS (3)
  1. AZULFIDINE [Suspect]
     Indication: MUSCULOSKELETAL PAIN
     Dosage: 500 MG, 2X/DAY
     Route: 048
     Dates: start: 20090801, end: 20100603
  2. PREDONINE [Concomitant]
     Indication: MUSCULOSKELETAL PAIN
     Dosage: 2.5 MG, 2X/DAY
     Route: 048
     Dates: end: 20100607
  3. MEROPEN [Concomitant]
     Dosage: 0.5 G, UNK
     Dates: start: 20100530, end: 20100610

REACTIONS (4)
  - DIARRHOEA [None]
  - HISTIOCYTOSIS HAEMATOPHAGIC [None]
  - PANCYTOPENIA [None]
  - PYREXIA [None]
